FAERS Safety Report 8075546-8 (Version None)
Quarter: 2012Q1

REPORT INFORMATION
  Report Type: 
  Country: None (occurrence: None)
  Receive Date: 20120127
  Receipt Date: 20120124
  Transmission Date: 20120608
  Serious: Yes (Hospitalization, Other)
  Sender: FDA-Public Use
  Company Number: DE-BRISTOL-MYERS SQUIBB COMPANY-16221285

PATIENT
  Age: 43 Year
  Sex: Female

DRUGS (6)
  1. CYMBALTA [Suspect]
     Dosage: CAPSULES
  2. TRUXAL [Suspect]
     Dosage: IF NEEDED BID,
  3. ABILIFY [Suspect]
     Dates: end: 20111201
  4. BISOPROLOL FUMARATE [Suspect]
  5. DIAZEPAM [Suspect]
     Dosage: TABLETS
  6. HALDOL [Suspect]
     Dosage: TABLETS

REACTIONS (2)
  - ARTERIAL OCCLUSIVE DISEASE [None]
  - WEIGHT INCREASED [None]
